FAERS Safety Report 8787825 (Version 1)
Quarter: 2012Q4

REPORT INFORMATION
  Report Type: 
  Country: SD (occurrence: SD)
  Receive Date: 20120914
  Receipt Date: 20120914
  Transmission Date: 20130627
  Serious: Yes (Death)
  Sender: FDA-Public Use
  Company Number: PHHY2009SD070983

PATIENT
  Sex: Female

DRUGS (1)
  1. GLIVEC [Suspect]
     Dosage: UNK
     Dates: start: 20081118

REACTIONS (1)
  - Circulatory collapse [Fatal]
